FAERS Safety Report 21834060 (Version 1)
Quarter: 2023Q1

REPORT INFORMATION
  Report Type: Spontaneous
  Country: US (occurrence: None)
  Receive Date: 20230108
  Receipt Date: 20230108
  Transmission Date: 20230418
  Serious: No
  Sender: FDA-Public Use
  Company Number: US-ROCHE-3020575

PATIENT
  Sex: Female

DRUGS (2)
  1. HEMLIBRA [Suspect]
     Active Substance: EMICIZUMAB-KXWH
     Indication: Factor VIII deficiency
     Dosage: 105MG/0.7ML
     Route: 058
     Dates: start: 20211109
  2. HEMLIBRA [Suspect]
     Active Substance: EMICIZUMAB-KXWH
     Dosage: 60MG/0.4ML, INJECT 0.65ML FROM 30MG/ML VIAL AND DISCARD REMAINING SOLUTION. INJECT 1.1ML COMBINING O
     Route: 058
     Dates: start: 20211109

REACTIONS (1)
  - Injection site discharge [Unknown]
